FAERS Safety Report 25856961 (Version 1)
Quarter: 2025Q3

REPORT INFORMATION
  Report Type: Spontaneous
  Country: US (occurrence: US)
  Receive Date: 20250929
  Receipt Date: 20250929
  Transmission Date: 20251020
  Serious: No
  Sender: MERCK SHARP & DOHME LLC
  Company Number: US-009507513-2333134

PATIENT
  Sex: Male

DRUGS (6)
  1. IVERMECTIN [Suspect]
     Active Substance: IVERMECTIN
     Indication: Scabies
     Route: 048
  2. dipulimab [Concomitant]
     Indication: Dermatitis atopic
  3. ITRACONAZOLE [Concomitant]
     Active Substance: ITRACONAZOLE
     Indication: Superinfection fungal
  4. UPADACITINIB [Concomitant]
     Active Substance: UPADACITINIB
  5. PERMETHRIN [Concomitant]
     Active Substance: PERMETHRIN
     Indication: Scabies
     Route: 061
  6. PREDNISONE [Concomitant]
     Active Substance: PREDNISONE

REACTIONS (1)
  - Product use in unapproved indication [Unknown]
